FAERS Safety Report 4337633-7 (Version None)
Quarter: 2004Q2

REPORT INFORMATION
  Report Type: 
  Country: None (occurrence: None)
  Receive Date: 20040412
  Receipt Date: 20040412
  Transmission Date: 20050107
  Serious: Yes (Other)
  Sender: FDA-Public Use
  Company Number: None

PATIENT
  Age: 71 Year
  Sex: Female
  Weight: 71 kg

DRUGS (2)
  1. KETOROLAC 15 MG ABBOTT LABS [Suspect]
     Indication: POST PROCEDURAL PAIN
     Dosage: 15 MG IV
     Route: 042
     Dates: start: 20040408
  2. KETOROLAC 15 MG ABBOTT LABS [Suspect]
     Indication: POST PROCEDURAL PAIN
     Dosage: 15 MG IV
     Route: 042
     Dates: start: 20040409

REACTIONS (3)
  - AGGRESSION [None]
  - CONFUSIONAL STATE [None]
  - HALLUCINATION [None]
